FAERS Safety Report 15706865 (Version 4)
Quarter: 2019Q2

REPORT INFORMATION
  Report Type: Spontaneous
  Country: US (occurrence: US)
  Receive Date: 20181210
  Receipt Date: 20190416
  Transmission Date: 20190711
  Serious: Yes (Hospitalization, Disabling, Other)
  Sender: FDA-Public Use
  Company Number: US-VIFOR (INTERNATIONAL) INC.-VIT-2018-12147

PATIENT
  Age: 63 Year
  Sex: Male
  Weight: 98.06 kg

DRUGS (15)
  1. COLACE [Concomitant]
     Active Substance: DOCUSATE SODIUM
     Route: 048
  2. LIPITOR [Concomitant]
     Active Substance: ATORVASTATIN CALCIUM
     Route: 048
  3. ASPIRIN ADULT LOW DOSE [Concomitant]
     Active Substance: ASPIRIN
     Route: 048
  4. COREG [Concomitant]
     Active Substance: CARVEDILOL
     Dosage: 1.5 TABLETS WITH MEALS
     Route: 048
  5. DIGOX [Concomitant]
     Active Substance: DIGOXIN
     Dosage: HALF TABLET
  6. ENTRESTO [Concomitant]
     Active Substance: SACUBITRIL\VALSARTAN
     Dosage: 24-26 MILLIGRAM
     Route: 048
  7. GLUCOPHAGE-XR [Concomitant]
     Dosage: WITH SUPPER
     Route: 048
  8. TRESIBA [Concomitant]
     Active Substance: INSULIN DEGLUDEC
  9. COUMADIN [Concomitant]
     Active Substance: WARFARIN SODIUM
     Dosage: 4 MG ONCE DAILY  IN THE EVENING ON WEDNESDAY, FRIDAY, SATURDAY, SUNDAY AND MONDAY. 6 MG ON TUESDAY A
  10. ULTRAM [Concomitant]
     Active Substance: TRAMADOL HYDROCHLORIDE
     Indication: PAIN
     Dosage: 1 TABLET BY MOUTH EVERY FOUR HOURS AS NEEDED
     Route: 048
  11. LASIX [Concomitant]
     Active Substance: FUROSEMIDE
     Route: 048
  12. MYCOSTATIN [Concomitant]
     Active Substance: NYSTATIN
  13. PROTONIX [Concomitant]
     Active Substance: PANTOPRAZOLE SODIUM
     Route: 048
  14. VELTASSA [Suspect]
     Active Substance: PATIROMER
     Indication: HYPERKALAEMIA
     Route: 048
     Dates: start: 20181017, end: 2018
  15. JARDIANCE [Concomitant]
     Active Substance: EMPAGLIFLOZIN
     Route: 048

REACTIONS (9)
  - Asthenia [Recovered/Resolved]
  - Peripheral artery occlusion [Recovered/Resolved]
  - Gangrene [Recovered/Resolved]
  - Osteomyelitis [Unknown]
  - Procedural pain [Recovered/Resolved]
  - Necrosis [Unknown]
  - Peripheral arterial occlusive disease [Unknown]
  - Blood loss anaemia [Recovered/Resolved]
  - Condition aggravated [Unknown]

NARRATIVE: CASE EVENT DATE: 20181108
